FAERS Safety Report 17200403 (Version 2)
Quarter: 2021Q1

REPORT INFORMATION
  Report Type: Spontaneous
  Country: US (occurrence: US)
  Receive Date: 20191226
  Receipt Date: 20210302
  Transmission Date: 20210419
  Serious: Yes (Other)
  Sender: FDA-Public Use
  Company Number: US-ASTRAZENECA-2019SF85906

PATIENT
  Age: 34 Year
  Sex: Female

DRUGS (84)
  1. NEXIUM [Suspect]
     Active Substance: ESOMEPRAZOLE MAGNESIUM
     Indication: DYSPEPSIA
     Route: 048
     Dates: start: 2001, end: 2018
  2. OMEPRAZOLE. [Suspect]
     Active Substance: OMEPRAZOLE
     Indication: DYSPEPSIA
     Dosage: GENERIC
     Route: 065
     Dates: start: 20191009
  3. AMOXICILLIN. [Concomitant]
     Active Substance: AMOXICILLIN
     Indication: INFECTION
  4. ASPIRIN. [Concomitant]
     Active Substance: ASPIRIN
     Indication: BODY TEMPERATURE ABNORMAL
  5. DIPHENOXY/ATROP [Concomitant]
  6. AMOX /CLAV [Concomitant]
  7. FLAGYL [Concomitant]
     Active Substance: METRONIDAZOLE\METRONIDAZOLE HYDROCHLORIDE
  8. FLEXERIL [Concomitant]
     Active Substance: CYCLOBENZAPRINE HYDROCHLORIDE
  9. ZANTAC [Concomitant]
     Active Substance: RANITIDINE HYDROCHLORIDE
  10. PROZAC [Concomitant]
     Active Substance: FLUOXETINE HYDROCHLORIDE
  11. MONOHYDRATE/MICROCRYSTAL [Concomitant]
  12. NEXIUM [Suspect]
     Active Substance: ESOMEPRAZOLE MAGNESIUM
     Indication: DYSPEPSIA
     Dosage: GENERIC
     Route: 065
     Dates: start: 2015, end: 2019
  13. NEXIUM 24HR [Suspect]
     Active Substance: ESOMEPRAZOLE MAGNESIUM
     Indication: FLATULENCE
     Route: 048
     Dates: start: 2014, end: 2018
  14. ASPIRIN. [Concomitant]
     Active Substance: ASPIRIN
     Indication: PAIN
  15. PAROXETINE. [Concomitant]
     Active Substance: PAROXETINE
  16. RANITIDINE. [Concomitant]
     Active Substance: RANITIDINE
  17. NAPROSYN [Concomitant]
     Active Substance: NAPROXEN
  18. MENTHOL. [Concomitant]
     Active Substance: MENTHOL
  19. PYRIDIUM [Concomitant]
     Active Substance: PHENAZOPYRIDINE
  20. SULFAMETHOXAZOLE [Concomitant]
     Active Substance: SULFAMETHOXAZOLE
     Indication: INFECTION
  21. IBUPROFEN. [Concomitant]
     Active Substance: IBUPROFEN
     Indication: BODY TEMPERATURE ABNORMAL
  22. KETOCONAZOLE. [Concomitant]
     Active Substance: KETOCONAZOLE
  23. FERROUS SULFATE. [Concomitant]
     Active Substance: FERROUS SULFATE
  24. VITAMIN D [Concomitant]
     Active Substance: VITAMIN D NOS
  25. BENTYL [Concomitant]
     Active Substance: DICYCLOMINE HYDROCHLORIDE
  26. FERRITIN [Concomitant]
     Active Substance: FERRITIN
  27. MIRTAZAPINE. [Concomitant]
     Active Substance: MIRTAZAPINE
  28. NEXIUM [Suspect]
     Active Substance: ESOMEPRAZOLE MAGNESIUM
     Indication: FLATULENCE
     Route: 048
     Dates: start: 2001, end: 2018
  29. TYLENOL [Concomitant]
     Active Substance: ACETAMINOPHEN
     Indication: PAIN
  30. SMZ?TMP [Concomitant]
     Active Substance: SULFAMETHOXAZOLE\TRIMETHOPRIM
  31. CEPHALEXIN. [Concomitant]
     Active Substance: CEPHALEXIN
  32. DICLOFENAC [Concomitant]
     Active Substance: DICLOFENAC
  33. PERCOCET [Concomitant]
     Active Substance: ACETAMINOPHEN\OXYCODONE HYDROCHLORIDE
  34. ROLAIDS [Concomitant]
     Active Substance: CALCIUM CARBONATE\MAGNESIUM HYDROXIDE
  35. VANCOMYCIN [Concomitant]
     Active Substance: VANCOMYCIN
  36. LACTULOSE. [Concomitant]
     Active Substance: LACTULOSE
  37. BIOXIN [Concomitant]
     Active Substance: INOSINE
  38. BACLOFEN. [Concomitant]
     Active Substance: BACLOFEN
  39. DONAZEPAM [Concomitant]
  40. CELEXA [Concomitant]
     Active Substance: CITALOPRAM HYDROBROMIDE
  41. TORADOL [Concomitant]
     Active Substance: KETOROLAC TROMETHAMINE
  42. FOLIC ACID. [Concomitant]
     Active Substance: FOLIC ACID
  43. AMITIZA [Concomitant]
     Active Substance: LUBIPROSTONE
  44. NEXIUM 24HR [Suspect]
     Active Substance: ESOMEPRAZOLE MAGNESIUM
     Indication: DYSPEPSIA
     Route: 048
     Dates: start: 2014, end: 2018
  45. PREVACID 24 HR [Suspect]
     Active Substance: LANSOPRAZOLE
     Indication: DYSPEPSIA
     Route: 065
     Dates: start: 2009, end: 2019
  46. CIPROFLOXACIN. [Concomitant]
     Active Substance: CIPROFLOXACIN
     Indication: INFECTION
  47. TUMS [Concomitant]
     Active Substance: CALCIUM CARBONATE
  48. HYDROCODONE BITARTRATE AND ACETAMINOPHEN [Concomitant]
     Active Substance: ACETAMINOPHEN\HYDROCODONE BITARTRATE
  49. HYDROMET [Concomitant]
     Active Substance: HOMATROPINE METHYLBROMIDE\HYDROCODONE BITARTRATE
  50. CITALOPRAM [Concomitant]
     Active Substance: CITALOPRAM HYDROBROMIDE
  51. REGLAN [Concomitant]
     Active Substance: METOCLOPRAMIDE HYDROCHLORIDE
  52. NITROGLYCERIN. [Concomitant]
     Active Substance: NITROGLYCERIN
  53. NARCAN [Concomitant]
     Active Substance: NALOXONE HYDROCHLORIDE
  54. BENZODIAZEPINE [Concomitant]
     Active Substance: BENZODIAZEPINE
  55. SERTRALINE [Concomitant]
     Active Substance: SERTRALINE HYDROCHLORIDE
  56. PRILOSEC OTC [Suspect]
     Active Substance: OMEPRAZOLE MAGNESIUM
     Indication: DYSPEPSIA
     Route: 048
     Dates: start: 2003
  57. PREVACID 24 HR [Suspect]
     Active Substance: LANSOPRAZOLE
     Indication: FLATULENCE
     Route: 065
     Dates: start: 2009, end: 2019
  58. IBUPROFEN. [Concomitant]
     Active Substance: IBUPROFEN
     Indication: PAIN
  59. CARISOPRODOL. [Concomitant]
     Active Substance: CARISOPRODOL
  60. PHENAZOPYRIDINE. [Concomitant]
     Active Substance: PHENAZOPYRIDINE
  61. ULTRAM [Concomitant]
     Active Substance: TRAMADOL HYDROCHLORIDE
  62. ELMIRON [Concomitant]
     Active Substance: PENTOSAN POLYSULFATE SODIUM
  63. ROCEPHIN [Concomitant]
     Active Substance: CEFTRIAXONE SODIUM
  64. MEDROL [Concomitant]
     Active Substance: METHYLPREDNISOLONE
  65. OXYCODONE [Concomitant]
     Active Substance: OXYCODONE
  66. ONDANSETRON [Concomitant]
     Active Substance: ONDANSETRON
  67. CHLORDIAZEPOXIDE/AMIT [Concomitant]
  68. DIFLUCAN [Concomitant]
     Active Substance: FLUCONAZOLE
  69. ESTRADIOL. [Concomitant]
     Active Substance: ESTRADIOL
  70. ZOLOFT [Concomitant]
     Active Substance: SERTRALINE HYDROCHLORIDE
  71. SOLU?MEDROL [Concomitant]
     Active Substance: METHYLPREDNISOLONE SODIUM SUCCINATE
  72. SENNA [Concomitant]
     Active Substance: SENNA LEAF\SENNOSIDES\SENNOSIDES A AND B
  73. NEXIUM [Suspect]
     Active Substance: ESOMEPRAZOLE MAGNESIUM
     Indication: FLATULENCE
     Route: 048
     Dates: start: 200102, end: 201812
  74. NEXIUM [Suspect]
     Active Substance: ESOMEPRAZOLE MAGNESIUM
     Indication: DYSPEPSIA
     Route: 048
     Dates: start: 200102, end: 201812
  75. NEXIUM [Suspect]
     Active Substance: ESOMEPRAZOLE MAGNESIUM
     Indication: FLATULENCE
     Dosage: GENERIC
     Route: 065
     Dates: start: 2015, end: 2019
  76. OMEPRAZOLE. [Suspect]
     Active Substance: OMEPRAZOLE
     Indication: FLATULENCE
     Dosage: GENERIC
     Route: 065
     Dates: start: 20191009
  77. PRILOSEC OTC [Suspect]
     Active Substance: OMEPRAZOLE MAGNESIUM
     Indication: FLATULENCE
     Route: 048
     Dates: start: 2003
  78. TYLENOL [Concomitant]
     Active Substance: ACETAMINOPHEN
     Indication: BODY TEMPERATURE ABNORMAL
  79. ALPRAZOLAM. [Concomitant]
     Active Substance: ALPRAZOLAM
  80. BUSPIRONE [Concomitant]
     Active Substance: BUSPIRONE HYDROCHLORIDE
  81. PHENERGAN [Concomitant]
     Active Substance: PROMETHAZINE HYDROCHLORIDE
  82. PENICILLIN [Concomitant]
     Active Substance: PENICILLIN
  83. AMBIEN [Concomitant]
     Active Substance: ZOLPIDEM TARTRATE
  84. VALIUM [Concomitant]
     Active Substance: DIAZEPAM

REACTIONS (4)
  - Gastritis [Not Recovered/Not Resolved]
  - Acute kidney injury [Not Recovered/Not Resolved]
  - Dyspepsia [Not Recovered/Not Resolved]
  - Chronic kidney disease [Unknown]

NARRATIVE: CASE EVENT DATE: 2003
